FAERS Safety Report 21490045 (Version 2)
Quarter: 2022Q4

REPORT INFORMATION
  Report Type: Spontaneous
  Country: US (occurrence: US)
  Receive Date: 20221021
  Receipt Date: 20221026
  Transmission Date: 20230112
  Serious: Yes (Hospitalization, Other)
  Sender: FDA-Public Use
  Company Number: US-ORGANON-O2210USA001060

PATIENT
  Sex: Female

DRUGS (2)
  1. NEXPLANON [Suspect]
     Active Substance: ETONOGESTREL
     Indication: Contraception
     Dosage: 1 ROD IN LEFT ARM
     Route: 058
     Dates: start: 20190909, end: 20200319
  2. NEXPLANON [Suspect]
     Active Substance: ETONOGESTREL
     Indication: Contraception
     Dosage: 1 IMPLANT IN LEFT ARM
     Route: 058
     Dates: start: 20201203, end: 20211216

REACTIONS (21)
  - Superior sagittal sinus thrombosis [Not Recovered/Not Resolved]
  - Transverse sinus thrombosis [Not Recovered/Not Resolved]
  - Brain oedema [Recovering/Resolving]
  - Sepsis [Unknown]
  - Encephalopathy [Recovering/Resolving]
  - Leukocytosis [Not Recovered/Not Resolved]
  - Papilloedema [Not Recovered/Not Resolved]
  - Abdominal pain [Recovered/Resolved]
  - Diarrhoea [Recovered/Resolved]
  - Blood sodium increased [Unknown]
  - Iron deficiency anaemia [Not Recovered/Not Resolved]
  - Lagophthalmos [Recovering/Resolving]
  - Blood urea decreased [Unknown]
  - Device issue [Recovered/Resolved]
  - Complication associated with device [Recovered/Resolved]
  - Device placement issue [Recovered/Resolved]
  - Implant site oedema [Unknown]
  - Implant site scar [Unknown]
  - Amenorrhoea [Unknown]
  - Weight increased [Unknown]
  - Maternal exposure during pregnancy [Unknown]

NARRATIVE: CASE EVENT DATE: 20190101
